FAERS Safety Report 11360948 (Version 1)
Quarter: 2015Q3

REPORT INFORMATION
  Report Type: Report from Study
  Country: ES (occurrence: ES)
  Receive Date: 20150810
  Receipt Date: 20150810
  Transmission Date: 20151125
  Serious: Yes (Hospitalization)
  Sender: FDA-Public Use
  Company Number: ES-SA-2015SA117352

PATIENT
  Age: 22 Year
  Sex: Male

DRUGS (31)
  1. BROMAZEPAM [Concomitant]
     Active Substance: BROMAZEPAM
     Route: 048
     Dates: start: 20150407, end: 20150421
  2. CLOXACILLIN [Concomitant]
     Active Substance: CLOXACILLIN
     Route: 042
     Dates: start: 20150407, end: 20150407
  3. FUROSEMIDE. [Concomitant]
     Active Substance: FUROSEMIDE
     Route: 042
     Dates: start: 20150407, end: 20150408
  4. HYDROCORTISONE. [Concomitant]
     Active Substance: HYDROCORTISONE
     Route: 042
     Dates: start: 20150407, end: 20150408
  5. NIFEDIPINE. [Concomitant]
     Active Substance: NIFEDIPINE
     Dosage: 30 MG, 2 TIMES A DAY. (NOTE: FROM 07/04 TO 04/09/15 30 MG EVERY 12 HOURS AS NEEDED
     Route: 048
     Dates: start: 20150409, end: 20150421
  6. TACROLIMUS. [Concomitant]
     Active Substance: TACROLIMUS
     Dosage: IN ASCENDING DOSES FROM 07/04 TO 21/04 FROM 5 - 25 MG PER DAY
     Route: 048
     Dates: start: 20150407, end: 20150421
  7. CEFTAZIDIME. [Concomitant]
     Active Substance: CEFTAZIDIME
     Route: 042
     Dates: start: 20150407, end: 20150420
  8. DOXAZOSIN [Concomitant]
     Active Substance: DOXAZOSIN\DOXAZOSIN MESYLATE
     Route: 048
     Dates: start: 20150412, end: 20150413
  9. MYCOPHENOLIC ACID. [Concomitant]
     Active Substance: MYCOPHENOLIC ACID
     Dosage: IN ASCENDING DOSE FROM 180 MG /12 H TO 720 MG/12 HOURS IN DAILY DOSAGE.
     Route: 048
     Dates: start: 20150407, end: 20150421
  10. COTRIMOXAZOLE [Concomitant]
     Active Substance: SULFAMETHOXAZOLE\TRIMETHOPRIM
     Dosage: 1 UNIT MONDAY, WEDNESDAY AND FRIDAY
     Route: 048
     Dates: start: 20150407, end: 20150421
  11. THYMOGLOBULIN [Suspect]
     Active Substance: LAPINE T-LYMPHOCYTE IMMUNE GLOBULIN
     Dosage: 15 MG/KG/DIA. 550 MG REPARTIDOS EN 7 DOSIS.
     Route: 042
     Dates: start: 20150407, end: 20150416
  12. DEXCHLORPHENIRAMINE [Concomitant]
     Active Substance: DEXCHLORPHENIRAMINE
     Route: 042
     Dates: start: 20150407, end: 20150411
  13. ENOXAPARIN [Concomitant]
     Active Substance: ENOXAPARIN
     Dates: start: 20150410, end: 20150413
  14. METHYLPREDNISOLONE. [Concomitant]
     Active Substance: METHYLPREDNISOLONE
     Dosage: DESCENDING DOSES FROM 100 TO 16MG
     Route: 042
     Dates: start: 20150407, end: 20150416
  15. METOCLOPRAMIDE. [Concomitant]
     Active Substance: METOCLOPRAMIDE
     Dosage: 10 MG IF REQUIRED
     Route: 042
     Dates: start: 20150407, end: 20150421
  16. MUPIROCIN. [Concomitant]
     Active Substance: MUPIROCIN
     Route: 061
     Dates: start: 20150407, end: 20150414
  17. CARVEDILOL. [Concomitant]
     Active Substance: CARVEDILOL
     Route: 048
     Dates: start: 20150415, end: 20150421
  18. ENOXAPARIN [Concomitant]
     Active Substance: ENOXAPARIN
     Dates: start: 20150413, end: 20150421
  19. MANNITOL. [Concomitant]
     Active Substance: MANNITOL
     Dosage: 250 ML, 1 DOSE
     Route: 042
     Dates: start: 20150407, end: 20150407
  20. DARBEPOETIN ALFA [Concomitant]
     Active Substance: DARBEPOETIN ALFA
     Route: 058
     Dates: start: 20150407, end: 20150421
  21. DOXAZOSIN [Concomitant]
     Active Substance: DOXAZOSIN\DOXAZOSIN MESYLATE
     Dosage: 10/04 AL 12/04/15: 4 MG SI PRECISA. 12/04/ AL 13/04/15: 8 MG 1 VEZ AL DIA. 13/04 AL 21/04/15: 4 MG 3
     Route: 048
     Dates: start: 20150410, end: 20150412
  22. DOXAZOSIN [Concomitant]
     Active Substance: DOXAZOSIN\DOXAZOSIN MESYLATE
     Dates: start: 20150413, end: 20150421
  23. VITAMIN D [Concomitant]
     Active Substance: CHOLECALCIFEROL
     Dosage: 0.25 MCG, 1 TIME PER DAY, MONDAY, WEDNESDAY AND FRIDAY
     Route: 048
     Dates: start: 20150410, end: 20150421
  24. SODIUM BICARBONATE. [Concomitant]
     Active Substance: SODIUM BICARBONATE
     Dosage: 250 ML IV EVERY 8 HOURS AFTER EVERY 12 HOURS. 1 GRAM SACHET ORALLY EVERY 8 HOURS.
     Dates: start: 20150407, end: 20150421
  25. PANTOPRAZOLE SODIUM. [Concomitant]
     Active Substance: PANTOPRAZOLE SODIUM
     Route: 048
     Dates: start: 20150407, end: 20150421
  26. PREDNISONE. [Concomitant]
     Active Substance: PREDNISONE
     Route: 048
     Dates: start: 20150407, end: 20150421
  27. METAMIZOLE [Concomitant]
     Active Substance: METAMIZOLE
     Dosage: 2000 MG, IF NECESSARY
     Route: 042
     Dates: start: 20150407, end: 20150421
  28. AMPICILLIN [Concomitant]
     Active Substance: AMPICILLIN
     Route: 042
     Dates: start: 20150407, end: 20150407
  29. PARACETAMOL [Concomitant]
     Active Substance: ACETAMINOPHEN
     Dosage: 1000 MG EVERY 8 HOURS, THEN EVERY 12 AND THEN IF NECESSARY
     Route: 042
     Dates: start: 20150407, end: 20150421
  30. INSULIN LISPRO [Concomitant]
     Active Substance: INSULIN LISPRO
     Dosage: 1 DOSAGE UNIT IF NECESSARY
     Route: 058
     Dates: start: 20150407, end: 20150421
  31. VALGANCICLOVIR [Concomitant]
     Active Substance: VALGANCICLOVIR
     Dosage: 450 MG, IN BREAKFAST ON MONDAYS, WEDNESDAYS AND FRIDAYS
     Route: 048
     Dates: start: 20150407, end: 20150421

REACTIONS (1)
  - Pancreatitis acute [Recovered/Resolved]

NARRATIVE: CASE EVENT DATE: 20150417
